FAERS Safety Report 5594651-9 (Version None)
Quarter: 2007Q4

REPORT INFORMATION
  Report Type: 
  Country: None (occurrence: None)
  Receive Date: 20071217
  Receipt Date: 20061205
  Transmission Date: 20080405
  Serious: Yes (Other)
  Sender: FDA-Public Use
  Company Number: 2006150937

PATIENT
  Sex: Male
  Weight: 102.0593 kg

DRUGS (5)
  1. DOXAZOSIN MESYLATE [Suspect]
     Dosage: (4 MG)
  2. VERAPAMIL HYDROCHLORIDE [Suspect]
     Indication: HYPERTENSION
     Dosage: (180 MG)
  3. ALPRAZOLAM [Suspect]
  4. POTASSIUM CHLORIDE [Concomitant]
  5. DIOVAN HCT [Concomitant]

REACTIONS (1)
  - ERECTILE DYSFUNCTION [None]
